FAERS Safety Report 17939328 (Version 1)
Quarter: 2020Q2

REPORT INFORMATION
  Report Type: Spontaneous
  Country: FR (occurrence: FR)
  Receive Date: 20200624
  Receipt Date: 20200624
  Transmission Date: 20200714
  Serious: Yes (Hospitalization)
  Sender: FDA-Public Use
  Company Number: FR-PFIZER INC-2020244013

PATIENT
  Age: 65 Year
  Sex: Male
  Weight: 85 kg

DRUGS (19)
  1. SKENAN [Concomitant]
     Active Substance: MORPHINE SULFATE
     Dosage: UNK
  2. SPIRIVA [Concomitant]
     Active Substance: TIOTROPIUM BROMIDE MONOHYDRATE
     Dosage: UNK
  3. ATORVASTATIN [Concomitant]
     Active Substance: ATORVASTATIN
     Dosage: UNK
  4. AERIUS (DESLORATADINE) [Concomitant]
     Active Substance: DESLORATADINE
     Dosage: UNK
  5. LANTUS [Concomitant]
     Active Substance: INSULIN GLARGINE
     Dosage: UNK
  6. VENTOLINE [SALBUTAMOL SULFATE] [Concomitant]
     Active Substance: ALBUTEROL SULFATE
     Dosage: UNK
  7. LOPERAMIDE HYDROCHLORIDE. [Concomitant]
     Active Substance: LOPERAMIDE HYDROCHLORIDE
     Dosage: UNK
  8. INNOHEP [Concomitant]
     Active Substance: TINZAPARIN SODIUM
     Dosage: UNK
  9. RHINOCORT [Concomitant]
     Active Substance: BUDESONIDE
     Dosage: UNK
  10. GAVISCON [CALCIUM CARBONATE;POTASSIUM BICARBONATE;SODIUM ALGINATE] [Concomitant]
     Dosage: UNK
  11. ZOLPIDEM [Concomitant]
     Active Substance: ZOLPIDEM TARTRATE
     Dosage: UNK
  12. JANUMET [Concomitant]
     Active Substance: METFORMIN HYDROCHLORIDE\SITAGLIPTIN PHOSPHATE
     Dosage: UNK
  13. DOLIPRANE [Concomitant]
     Active Substance: ACETAMINOPHEN
     Dosage: UNK
  14. RAMIPRIL. [Concomitant]
     Active Substance: RAMIPRIL
     Dosage: UNK
  15. SUTENT [Suspect]
     Active Substance: SUNITINIB MALATE
     Indication: THYMOMA MALIGNANT
     Dosage: 1 DF, 1X/DAY
     Route: 048
     Dates: start: 20200425, end: 20200516
  16. RABEPRAZOLE [Concomitant]
     Active Substance: RABEPRAZOLE
     Dosage: UNK
  17. SERETIDE [Concomitant]
     Active Substance: FLUTICASONE PROPIONATE\SALMETEROL XINAFOATE
     Dosage: UNK
  18. ACTISKENAN [Concomitant]
     Active Substance: MORPHINE SULFATE
     Dosage: UNK
  19. GLIBENCLAMIDE [Concomitant]
     Active Substance: GLYBURIDE
     Dosage: UNK

REACTIONS (5)
  - Aphthous ulcer [Recovering/Resolving]
  - Weight decreased [Recovering/Resolving]
  - Decreased appetite [Recovering/Resolving]
  - Off label use [Unknown]
  - General physical health deterioration [Recovering/Resolving]

NARRATIVE: CASE EVENT DATE: 20200516
